FAERS Safety Report 14950359 (Version 1)
Quarter: 2018Q2

REPORT INFORMATION
  Report Type: Spontaneous
  Country: US (occurrence: US)
  Receive Date: 20180530
  Receipt Date: 20180530
  Transmission Date: 20180711
  Serious: Yes (Other)
  Sender: FDA-Public Use
  Company Number: US-RECKITT BENCKISER HEALTHCARE INT LIMITED-RB-86627-2018

PATIENT
  Age: 83 Year
  Sex: Female

DRUGS (1)
  1. MUCINEX [Suspect]
     Active Substance: GUAIFENESIN
     Indication: PRODUCT USED FOR UNKNOWN INDICATION
     Dosage: TOOK 1 TABLET AT 2:00 AM FEW HOURS LATER TOOK ANOTHER TABLET AND TOOK ANOTHER DOSAGE OF TWO TABLETS
     Route: 065
     Dates: start: 20180522

REACTIONS (5)
  - Screaming [Recovered/Resolved]
  - Abnormal behaviour [Recovered/Resolved]
  - Dyspnoea [Not Recovered/Not Resolved]
  - Inappropriate schedule of drug administration [Not Recovered/Not Resolved]
  - Aggression [Recovered/Resolved]

NARRATIVE: CASE EVENT DATE: 20180522
